FAERS Safety Report 7367015-5 (Version None)
Quarter: 2011Q1

REPORT INFORMATION
  Report Type: 
  Country: None (occurrence: None)
  Receive Date: 20110322
  Receipt Date: 20110310
  Transmission Date: 20110831
  Serious: Yes (Other)
  Sender: FDA-Public Use
  Company Number: FR-JNJFOC-20110302635

PATIENT
  Age: 36 Year
  Sex: Male

DRUGS (1)
  1. REMICADE [Suspect]
     Indication: COLITIS ULCERATIVE
     Route: 042

REACTIONS (4)
  - MALAISE [None]
  - INFUSION RELATED REACTION [None]
  - CHEST DISCOMFORT [None]
  - HOT FLUSH [None]
